FAERS Safety Report 25307225 (Version 1)
Quarter: 2025Q2

REPORT INFORMATION
  Report Type: Spontaneous
  Country: DE (occurrence: DE)
  Receive Date: 20250513
  Receipt Date: 20250513
  Transmission Date: 20250717
  Serious: Yes (Congenital Anomaly)
  Sender: MYLAN
  Company Number: DE-EMB-M201910096-1

PATIENT
  Sex: Male
  Weight: 3.5 kg

DRUGS (24)
  1. VENLAFAXINE [Suspect]
     Active Substance: VENLAFAXINE HYDROCHLORIDE
     Indication: Anxiety disorder
     Dosage: 75 MILLIGRAM, QD
     Dates: start: 201905, end: 202001
  2. VENLAFAXINE [Suspect]
     Active Substance: VENLAFAXINE HYDROCHLORIDE
     Indication: Depression
     Dosage: 75 MILLIGRAM, QD
     Dates: start: 201905, end: 202001
  3. VENLAFAXINE [Suspect]
     Active Substance: VENLAFAXINE HYDROCHLORIDE
     Dosage: 75 MILLIGRAM, QD
     Route: 064
     Dates: start: 201905, end: 202001
  4. VENLAFAXINE [Suspect]
     Active Substance: VENLAFAXINE HYDROCHLORIDE
     Dosage: 75 MILLIGRAM, QD
     Route: 064
     Dates: start: 201905, end: 202001
  5. VENLAFAXINE [Suspect]
     Active Substance: VENLAFAXINE HYDROCHLORIDE
     Dosage: 75 MILLIGRAM, QD
     Dates: start: 201905, end: 202001
  6. VENLAFAXINE [Suspect]
     Active Substance: VENLAFAXINE HYDROCHLORIDE
     Dosage: 75 MILLIGRAM, QD
     Dates: start: 201905, end: 202001
  7. VENLAFAXINE [Suspect]
     Active Substance: VENLAFAXINE HYDROCHLORIDE
     Dosage: 75 MILLIGRAM, QD
     Route: 064
     Dates: start: 201905, end: 202001
  8. VENLAFAXINE [Suspect]
     Active Substance: VENLAFAXINE HYDROCHLORIDE
     Dosage: 75 MILLIGRAM, QD
     Route: 064
     Dates: start: 201905, end: 202001
  9. Dominal [Concomitant]
     Indication: Sleep disorder
     Dosage: 40 MILLIGRAM, QD
     Dates: start: 201905, end: 201906
  10. Dominal [Concomitant]
     Dosage: 40 MILLIGRAM, QD
     Dates: start: 201905, end: 201906
  11. Dominal [Concomitant]
     Dosage: 40 MILLIGRAM, QD
     Route: 064
     Dates: start: 201905, end: 201906
  12. Dominal [Concomitant]
     Dosage: 40 MILLIGRAM, QD
     Route: 064
     Dates: start: 201905, end: 201906
  13. Dominal [Concomitant]
     Dosage: 40 MILLIGRAM, QD
     Dates: start: 201905, end: 201906
  14. Dominal [Concomitant]
     Dosage: 40 MILLIGRAM, QD
     Dates: start: 201905, end: 201906
  15. Dominal [Concomitant]
     Dosage: 40 MILLIGRAM, QD
     Route: 064
     Dates: start: 201905, end: 201906
  16. Dominal [Concomitant]
     Dosage: 40 MILLIGRAM, QD
     Route: 064
     Dates: start: 201905, end: 201906
  17. ZOLPIDEM [Concomitant]
     Active Substance: ZOLPIDEM TARTRATE
     Indication: Sleep disorder
     Dosage: 2.5 MILLIGRAM, QD
     Dates: start: 201906, end: 201908
  18. ZOLPIDEM [Concomitant]
     Active Substance: ZOLPIDEM TARTRATE
     Dosage: 2.5 MILLIGRAM, QD
     Dates: start: 201906, end: 201908
  19. ZOLPIDEM [Concomitant]
     Active Substance: ZOLPIDEM TARTRATE
     Dosage: 2.5 MILLIGRAM, QD
     Route: 064
     Dates: start: 201906, end: 201908
  20. ZOLPIDEM [Concomitant]
     Active Substance: ZOLPIDEM TARTRATE
     Dosage: 2.5 MILLIGRAM, QD
     Route: 064
     Dates: start: 201906, end: 201908
  21. ZOLPIDEM [Concomitant]
     Active Substance: ZOLPIDEM TARTRATE
     Dosage: 2.5 MILLIGRAM, QD
     Dates: start: 201906, end: 201908
  22. ZOLPIDEM [Concomitant]
     Active Substance: ZOLPIDEM TARTRATE
     Dosage: 2.5 MILLIGRAM, QD
     Dates: start: 201906, end: 201908
  23. ZOLPIDEM [Concomitant]
     Active Substance: ZOLPIDEM TARTRATE
     Dosage: 2.5 MILLIGRAM, QD
     Route: 064
     Dates: start: 201906, end: 201908
  24. ZOLPIDEM [Concomitant]
     Active Substance: ZOLPIDEM TARTRATE
     Dosage: 2.5 MILLIGRAM, QD
     Route: 064
     Dates: start: 201906, end: 201908

REACTIONS (3)
  - Ventricular septal defect [Unknown]
  - Atrial septal defect [Unknown]
  - Foetal exposure during pregnancy [Unknown]
